FAERS Safety Report 18059164 (Version 1)
Quarter: 2020Q3

REPORT INFORMATION
  Report Type: Spontaneous
  Country: PA (occurrence: PA)
  Receive Date: 20200723
  Receipt Date: 20200723
  Transmission Date: 20201103
  Serious: Yes (Other)
  Sender: FDA-Public Use
  Company Number: PA-SUN PHARMACEUTICAL INDUSTRIES LTD-2019R1-216329

PATIENT
  Age: 37 Year
  Sex: Female

DRUGS (3)
  1. CYCLOPHOSPHAMIDE. [Concomitant]
     Active Substance: CYCLOPHOSPHAMIDE
     Indication: BREAST CANCER STAGE III
     Dosage: UNK
     Route: 065
     Dates: start: 201301, end: 201303
  2. PACLITAXEL. [Concomitant]
     Active Substance: PACLITAXEL
     Indication: BREAST CANCER STAGE III
     Dosage: FROM APRIL TO JUNE
     Route: 065
  3. DOXORUBICIN [Suspect]
     Active Substance: DOXORUBICIN
     Indication: BREAST CANCER STAGE III
     Dosage: FOUR CYCLES (CUMULATIVE DOSE 240 MG/M2)
     Route: 065
     Dates: start: 201301, end: 201303

REACTIONS (2)
  - Congestive cardiomyopathy [Recovering/Resolving]
  - Gene mutation [Unknown]
